FAERS Safety Report 5108288-9 (Version None)
Quarter: 2006Q3

REPORT INFORMATION
  Report Type: 
  Country: None (occurrence: None)
  Receive Date: 20060914
  Receipt Date: 20060914
  Transmission Date: 20061208
  Serious: Yes (Other)
  Sender: FDA-Public Use
  Company Number: None

PATIENT
  Sex: Male
  Weight: 90.2658 kg

DRUGS (4)
  1. TOPIRAMATE [Suspect]
     Indication: BIPOLAR DISORDER
     Dosage: 100 MG PO HS
     Route: 048
  2. ARIPIPRAZOLE [Concomitant]
  3. CITALOPRAM HYDROBROMIDE [Concomitant]
  4. LITHIUM CARBONATE [Concomitant]

REACTIONS (1)
  - RASH GENERALISED [None]
